FAERS Safety Report 4609703-7 (Version None)
Quarter: 2005Q1

REPORT INFORMATION
  Report Type: 
  Country: None (occurrence: None)
  Receive Date: 20050314
  Receipt Date: 20050303
  Transmission Date: 20050727
  Serious: Yes (Death, Life-Threatening)
  Sender: FDA-Public Use
  Company Number: 2005-03-0262

PATIENT
  Age: 38 Year
  Sex: Male

DRUGS (4)
  1. TEMODAL [Suspect]
     Indication: GLIOBLASTOMA MULTIFORME
     Dosage: 200 MG QD ORAL
     Route: 048
     Dates: start: 20050224, end: 20050228
  2. RADIATION THERAPY [Concomitant]
  3. ONDANSETRON [Concomitant]
  4. METOCLOPRAMIDE [Concomitant]

REACTIONS (2)
  - COMPLETED SUICIDE [None]
  - GUN SHOT WOUND [None]
